FAERS Safety Report 16849181 (Version 1)
Quarter: 2019Q4

REPORT INFORMATION
  Report Type: Spontaneous
  Country: US (occurrence: US)
  Receive Date: 20190924
  Receipt Date: 20190924
  Transmission Date: 20200122
  Serious: Yes (Hospitalization)
  Sender: FDA-Public Use
  Company Number: None

PATIENT
  Age: 11 Year
  Sex: Female
  Weight: 37 kg

DRUGS (1)
  1. SIROLIMUS. [Suspect]
     Active Substance: SIROLIMUS
     Route: 048
     Dates: start: 20190621

REACTIONS (4)
  - Pseudomonal bacteraemia [None]
  - Infection [None]
  - Tachycardia [None]
  - Fatigue [None]

NARRATIVE: CASE EVENT DATE: 20190913
